FAERS Safety Report 4299256-8 (Version None)
Quarter: 2004Q1

REPORT INFORMATION
  Report Type: 
  Country: None (occurrence: None)
  Receive Date: 20040217
  Receipt Date: 20040209
  Transmission Date: 20041129
  Serious: Yes (Death)
  Sender: FDA-Public Use
  Company Number: US066234

PATIENT
  Age: 47 Year
  Sex: Male

DRUGS (1)
  1. PROCRIT [Suspect]
     Indication: HIV INFECTION
     Dosage: 44000 U, 1 IN 1 WEEKS
     Dates: end: 20040125

REACTIONS (1)
  - PNEUMONIA [None]
